FAERS Safety Report 24842694 (Version 1)
Quarter: 2025Q1

REPORT INFORMATION
  Report Type: Spontaneous
  Country: CL (occurrence: CL)
  Receive Date: 20250115
  Receipt Date: 20250115
  Transmission Date: 20250409
  Serious: Yes (Other)
  Sender: NOVO NORDISK
  Company Number: CL-NOVOPROD-1341025

PATIENT
  Age: 38 Year
  Sex: Male
  Weight: 87 kg

DRUGS (7)
  1. SAXENDA [Suspect]
     Active Substance: LIRAGLUTIDE
     Indication: Overweight
     Route: 058
     Dates: start: 20241115
  2. SAXENDA [Suspect]
     Active Substance: LIRAGLUTIDE
     Indication: Anxiety
     Route: 058
  3. SAXENDA [Suspect]
     Active Substance: LIRAGLUTIDE
     Indication: Facet joint syndrome
  4. SAMEXID [Concomitant]
     Indication: Anxiety
  5. SAMEXID [Concomitant]
     Indication: Attention deficit hyperactivity disorder
     Dosage: 30 MG, QD
     Route: 048
     Dates: start: 202410
  6. DULOXETINE [Concomitant]
     Active Substance: DULOXETINE
     Indication: Anxiety
  7. DULOXETINE [Concomitant]
     Active Substance: DULOXETINE
     Indication: Attention deficit hyperactivity disorder
     Dosage: 30 MG, QD
     Route: 048
     Dates: start: 2022

REACTIONS (4)
  - Impaired gastric emptying [Not Recovered/Not Resolved]
  - Syncope [Recovered/Resolved]
  - Retching [Not Recovered/Not Resolved]
  - Nausea [Recovering/Resolving]

NARRATIVE: CASE EVENT DATE: 20241115
